FAERS Safety Report 8370643-1 (Version None)
Quarter: 2012Q2

REPORT INFORMATION
  Report Type: 
  Country: None (occurrence: None)
  Receive Date: 20120518
  Receipt Date: 20120509
  Transmission Date: 20120825
  Serious: Yes (Other)
  Sender: FDA-Public Use
  Company Number: US-US-EMD SERONO, INC.-7011723

PATIENT
  Sex: Female

DRUGS (6)
  1. REBIF [Suspect]
     Indication: PRODUCT USED FOR UNKNOWN INDICATION
     Route: 058
     Dates: start: 20050902
  2. NITROGLYCERIN [Concomitant]
     Indication: CARDIOVASCULAR DISORDER
  3. POTASSIUM CHLORIDE [Concomitant]
     Indication: BLOOD POTASSIUM DECREASED
  4. CELEXA [Concomitant]
     Indication: DEPRESSION
  5. SYNTHROID [Concomitant]
     Indication: PRODUCT USED FOR UNKNOWN INDICATION
  6. VITAMIN D [Concomitant]
     Indication: VITAMIN D DECREASED

REACTIONS (4)
  - CHILLS [None]
  - RAYNAUD'S PHENOMENON [None]
  - DISEASE PROGRESSION [None]
  - FIBROMYALGIA [None]
